FAERS Safety Report 9777771 (Version 1)
Quarter: 2013Q4

REPORT INFORMATION
  Report Type: Spontaneous
  Country: BR (occurrence: BR)
  Receive Date: 20131223
  Receipt Date: 20131223
  Transmission Date: 20140711
  Serious: Yes (Other)
  Sender: FDA-Public Use
  Company Number: BR-BIOGENIDEC-2013BI122505

PATIENT
  Sex: Male

DRUGS (3)
  1. AVONEX [Suspect]
     Indication: MULTIPLE SCLEROSIS
     Route: 030
     Dates: start: 20120517, end: 20130125
  2. AVONEX [Suspect]
     Indication: MULTIPLE SCLEROSIS
     Route: 030
     Dates: start: 20130201
  3. ALPRAZOLAM [Concomitant]

REACTIONS (10)
  - Bipolar disorder [Not Recovered/Not Resolved]
  - Homicidal ideation [Unknown]
  - Aggression [Unknown]
  - Road traffic accident [Unknown]
  - Injury [Unknown]
  - Nervousness [Unknown]
  - Cognitive disorder [Unknown]
  - Visual field defect [Unknown]
  - Memory impairment [Not Recovered/Not Resolved]
  - Fatigue [Unknown]
